FAERS Safety Report 18817739 (Version 2)
Quarter: 2021Q1

REPORT INFORMATION
  Report Type: Report from Study
  Country: US (occurrence: US)
  Receive Date: 20210201
  Receipt Date: 20210316
  Transmission Date: 20210419
  Serious: Yes (Other)
  Sender: FDA-Public Use
  Company Number: NVSC2021US015604

PATIENT
  Sex: Female

DRUGS (4)
  1. COSENTYX [Suspect]
     Active Substance: SECUKINUMAB
     Indication: PALMOPLANTAR PUSTULOSIS
  2. LISINOPRIL. [Suspect]
     Active Substance: LISINOPRIL
     Indication: BLOOD PRESSURE MEASUREMENT
     Dosage: UNK
     Route: 065
  3. ATENOLOL. [Suspect]
     Active Substance: ATENOLOL
     Indication: BLOOD PRESSURE MEASUREMENT
     Dosage: UNK
     Route: 065
  4. COSENTYX [Suspect]
     Active Substance: SECUKINUMAB
     Indication: PSORIASIS
     Dosage: 300 MG, WEEKS 0, 1, 2, 3, AND 4 THEN ONCE EVERY 4 WEEKS THEREAFTER
     Route: 058

REACTIONS (8)
  - Blood pressure inadequately controlled [Unknown]
  - Angioedema [Unknown]
  - Swelling face [Unknown]
  - Drug ineffective [Unknown]
  - Skin fissures [Unknown]
  - Psoriasis [Unknown]
  - Lip swelling [Recovered/Resolved]
  - Product use in unapproved indication [Unknown]
